FAERS Safety Report 4525583-2 (Version None)
Quarter: 2004Q4

REPORT INFORMATION
  Report Type: 
  Country: None (occurrence: None)
  Receive Date: 20041116
  Receipt Date: 20041001
  Transmission Date: 20050328
  Serious: No
  Sender: FDA-Public Use
  Company Number: S04-USA-06452-01

PATIENT
  Age: 78 Year
  Sex: Female

DRUGS (5)
  1. NAMENDA [Suspect]
     Indication: DEMENTIA
     Dosage: 10 MG QD PO
     Route: 048
     Dates: start: 20040905, end: 20040905
  2. NAMENDA [Suspect]
     Indication: DEMENTIA
     Dosage: 5 MG QD PO
     Route: 048
     Dates: start: 20040829, end: 20040904
  3. SEROQUEL [Suspect]
     Dosage: 25 MG QD
  4. WARFARIN SODIUM [Concomitant]
  5. MULTI-VITAMINS [Concomitant]

REACTIONS (3)
  - CONTUSION [None]
  - FALL [None]
  - SOMNOLENCE [None]
